FAERS Safety Report 7248798-1 (Version None)
Quarter: 2011Q1

REPORT INFORMATION
  Report Type: 
  Country: None (occurrence: None)
  Receive Date: 20110128
  Receipt Date: 20110120
  Transmission Date: 20110831
  Serious: Yes (Other)
  Sender: FDA-Public Use
  Company Number: US-BRACCO-005859

PATIENT
  Age: 59 Year
  Sex: Male

DRUGS (7)
  1. ASPIRIN [Concomitant]
  2. ISOVUE-128 [Suspect]
     Indication: ANEURYSM
     Route: 013
     Dates: start: 20110119, end: 20110119
  3. ISOVUE-128 [Concomitant]
     Indication: HEADACHE
     Route: 042
     Dates: start: 20110117, end: 20110117
  4. FELODIPINE [Concomitant]
     Indication: HYPERTENSION
  5. ALL OTHER NON-THERAPEUTIC PRODUCTS [Concomitant]
  6. ISOVUE-128 [Concomitant]
     Indication: ANGIOGRAM
     Route: 042
     Dates: start: 20110117, end: 20110117
  7. ISOVUE-128 [Suspect]
     Indication: ANGIOGRAM
     Route: 013
     Dates: start: 20110119, end: 20110119

REACTIONS (2)
  - CEREBELLAR INFARCTION [None]
  - CEREBRAL INFARCTION [None]
